FAERS Safety Report 7132413-1 (Version None)
Quarter: 2010Q4

REPORT INFORMATION
  Report Type: 
  Country: None (occurrence: None)
  Receive Date: 20101202
  Receipt Date: 20101118
  Transmission Date: 20110411
  Serious: Yes (Other)
  Sender: FDA-Public Use
  Company Number: US-ROCHE-722755

PATIENT
  Sex: Male
  Weight: 59 kg

DRUGS (1)
  1. ACCUTANE [Suspect]
     Indication: ACNE
     Route: 065
     Dates: start: 19910101, end: 19920101

REACTIONS (20)
  - BACK PAIN [None]
  - COLITIS ULCERATIVE [None]
  - CROHN'S DISEASE [None]
  - DEPRESSION [None]
  - DRUG HYPERSENSITIVITY [None]
  - EPISTAXIS [None]
  - GASTRITIS [None]
  - GASTROINTESTINAL INJURY [None]
  - HEADACHE [None]
  - HEPATIC ENZYME INCREASED [None]
  - HERNIA [None]
  - HERPES ZOSTER [None]
  - INFLAMMATORY BOWEL DISEASE [None]
  - INSOMNIA [None]
  - INTESTINAL OBSTRUCTION [None]
  - IRRITABLE BOWEL SYNDROME [None]
  - NIGHT BLINDNESS [None]
  - ORAL HERPES [None]
  - RECTAL HAEMORRHAGE [None]
  - WEIGHT DECREASED [None]
